FAERS Safety Report 20632687 (Version 1)
Quarter: 2022Q1

REPORT INFORMATION
  Report Type: Spontaneous
  Country: US (occurrence: None)
  Receive Date: 20220324
  Receipt Date: 20220324
  Transmission Date: 20220423
  Serious: No
  Sender: FDA-Public Use
  Company Number: None

PATIENT

DRUGS (2)
  1. BUPROPION [Suspect]
     Active Substance: BUPROPION
     Dosage: TABLET, EXTENDED R
     Route: 048
  2. BUPROPION HYDROCHLORIDE EXTENDED RELEASE [Suspect]
     Active Substance: BUPROPION HYDROCHLORIDE
     Dosage: TABLET EXTENDED RELEASE ?UNIT DOSE
     Route: 048

REACTIONS (2)
  - Product label confusion [None]
  - Wrong product stored [None]
